FAERS Safety Report 6404845-8 (Version None)
Quarter: 2009Q4

REPORT INFORMATION
  Report Type: 
  Country: None (occurrence: None)
  Receive Date: 20091018
  Receipt Date: 20091008
  Transmission Date: 20100525
  Serious: Yes (Hospitalization)
  Sender: FDA-Public Use
  Company Number: JP-ABBOTT-09P-087-0500800-00

PATIENT
  Sex: Female

DRUGS (7)
  1. HUMIRA [Suspect]
     Indication: RHEUMATOID ARTHRITIS
     Route: 058
     Dates: start: 20090105, end: 20090105
  2. HUMIRA [Suspect]
     Route: 058
     Dates: start: 20090312
  3. METHOTREXATE [Concomitant]
     Indication: RHEUMATOID ARTHRITIS
     Route: 048
  4. ETODOLAC [Concomitant]
     Indication: RHEUMATOID ARTHRITIS
     Dosage: 400 MG DAILY
     Dates: start: 20070302
  5. FOLIC ACID [Concomitant]
     Indication: PROPHYLAXIS
     Dates: start: 20070302
  6. FOLIC ACID [Concomitant]
     Indication: ADVERSE DRUG REACTION
  7. PREDNISOLONE [Concomitant]
     Indication: RHEUMATOID ARTHRITIS
     Dosage: 2 MG DAILY
     Route: 048

REACTIONS (2)
  - FALL [None]
  - FEMORAL NECK FRACTURE [None]
